FAERS Safety Report 24816073 (Version 4)
Quarter: 2025Q1

REPORT INFORMATION
  Report Type: Spontaneous
  Country: AT (occurrence: AT)
  Receive Date: 20250107
  Receipt Date: 20250210
  Transmission Date: 20250409
  Serious: No
  Sender: PFIZER
  Company Number: AT-PFIZER INC-202400334888

PATIENT
  Age: 74 Year
  Sex: Female

DRUGS (13)
  1. ENBREL [Suspect]
     Active Substance: ETANERCEPT
     Indication: Rheumatoid vasculitis
     Dosage: 1 DF, WEEKLY (EVERY WEDNESDAY)
     Dates: end: 20241218
  2. CLOBETASOL [Concomitant]
     Active Substance: CLOBETASOL
     Indication: Arthropod bite
     Dosage: 1 DF, 2X/DAY (1-0-1-0)
     Route: 061
     Dates: start: 20241023
  3. OSSOFORTIN [CALCIUM CARBONATE;COLECALCIFEROL] [Concomitant]
     Dosage: 1 DF, 1X/DAY (0-0-0-1)
     Route: 048
     Dates: start: 20231004
  4. GABAPENTIN [Concomitant]
     Active Substance: GABAPENTIN
     Dosage: 1 DF, 1X/DAY (1-0-0-0)
     Route: 048
     Dates: start: 20230620
  5. GINKGO [Concomitant]
     Active Substance: GINKGO
     Dosage: 1 DF, 3X/DAY (1-1-1-0)
     Route: 048
     Dates: start: 20240911
  6. FENTANYL [Concomitant]
     Active Substance: FENTANYL
     Route: 061
     Dates: start: 20240125
  7. FENTANYL HEXAL [FENTANYL CITRATE] [Concomitant]
     Route: 061
     Dates: start: 20240125
  8. CHOLECALCIFEROL [Concomitant]
     Active Substance: CHOLECALCIFEROL
     Dosage: 15 DROP, WEEKLY (EVERY MONDAY)
     Route: 048
     Dates: start: 20240916
  9. EUTHYROX [Concomitant]
     Active Substance: LEVOTHYROXINE SODIUM
     Dosage: FASTING DAILY
     Route: 048
     Dates: start: 20240126
  10. ACETAMINOPHEN [Concomitant]
     Active Substance: ACETAMINOPHEN
     Route: 048
     Dates: start: 20230626
  11. PASSEDAN [Concomitant]
     Indication: Insomnia
     Dosage: 30 DROP, DAILY (AT NIGHT)
     Route: 048
     Dates: start: 20241206
  12. LACTULOSE [Concomitant]
     Active Substance: LACTULOSE
     Dosage: 1 ML, DAILY (IN THE MORNING), FROM THE 3RD STOOL-FREE DAY 1 TABLESPOON
     Dates: start: 20231124
  13. DIPYRONE [Concomitant]
     Active Substance: DIPYRONE
     Indication: Pain
     Dosage: MAXIMUM DOSE IN 24 HOURS: 3X 25 DROPS, MINIMUM INTERVAL: 4H
     Route: 048
     Dates: start: 20240805

REACTIONS (3)
  - Drug dose omission by device [Unknown]
  - Device deployment issue [Unknown]
  - Off label use [Unknown]

NARRATIVE: CASE EVENT DATE: 20241225
